FAERS Safety Report 6878109-2 (Version None)
Quarter: 2010Q2

REPORT INFORMATION
  Report Type: 
  Country: None (occurrence: None)
  Receive Date: 20100616
  Receipt Date: 20100319
  Transmission Date: 20101027
  Serious: No
  Sender: FDA-Public Use
  Company Number: DSA_42571_2010

PATIENT
  Sex: Female

DRUGS (4)
  1. XENAZINE [Suspect]
     Indication: DRUG USE FOR UNKNOWN INDICATION
     Dosage: 12.5 MG QD ORAL, 12.5 MG BID ORAL
     Route: 048
     Dates: start: 20091125, end: 20091101
  2. XENAZINE [Suspect]
     Indication: DRUG USE FOR UNKNOWN INDICATION
     Dosage: 12.5 MG QD ORAL, 12.5 MG BID ORAL
     Route: 048
     Dates: start: 20091101, end: 20091128
  3. DILANTIN [Concomitant]
  4. KEPPRA [Concomitant]

REACTIONS (3)
  - AGITATION [None]
  - DIARRHOEA [None]
  - VOMITING [None]
